FAERS Safety Report 19953066 (Version 1)
Quarter: 2021Q4

REPORT INFORMATION
  Report Type: Spontaneous
  Country: US (occurrence: US)
  Receive Date: 20211013
  Receipt Date: 20211013
  Transmission Date: 20220303
  Serious: Yes (Death)
  Sender: FDA-Public Use
  Company Number: None

PATIENT
  Age: 54 Year
  Sex: Male

DRUGS (13)
  1. MYFORTIC [Suspect]
     Active Substance: MYCOPHENOLATE SODIUM
     Indication: Renal transplant
     Route: 048
     Dates: start: 20160415
  2. MYFORTIC [Suspect]
     Active Substance: MYCOPHENOLATE SODIUM
     Indication: Organ transplant
  3. CARVEDILOL [Concomitant]
     Active Substance: CARVEDILOL
  4. CLONIDINE [Concomitant]
     Active Substance: CLONIDINE
  5. COREG [Concomitant]
     Active Substance: CARVEDILOL
  6. FAMOTIDINE [Concomitant]
     Active Substance: FAMOTIDINE
  7. INDUR [Concomitant]
  8. INSULIN NOS [Concomitant]
     Active Substance: INSULIN NOS
  9. ISOSORBIDE MONONITRATE [Concomitant]
     Active Substance: ISOSORBIDE MONONITRATE
  10. LOSARTAN POTASSIUM [Concomitant]
     Active Substance: LOSARTAN POTASSIUM
  11. PREDNISONE [Concomitant]
     Active Substance: PREDNISONE
  12. SIMVASTATIN [Concomitant]
     Active Substance: SIMVASTATIN
  13. VITAMIN D3 [Concomitant]
     Active Substance: CHOLECALCIFEROL

REACTIONS (1)
  - Death [None]

NARRATIVE: CASE EVENT DATE: 20211008
